FAERS Safety Report 4764060-0 (Version None)
Quarter: 2005Q3

REPORT INFORMATION
  Report Type: 
  Country: None (occurrence: None)
  Receive Date: 20050906
  Receipt Date: 20050614
  Transmission Date: 20060218
  Serious: No
  Sender: FDA-Public Use
  Company Number: 2005-BP-10021BP

PATIENT
  Sex: Female

DRUGS (13)
  1. SPIRIVA [Suspect]
     Indication: CHRONIC OBSTRUCTIVE PULMONARY DISEASE
     Dosage: 18 MCG (18 MCG, QD), IH
     Route: 055
     Dates: start: 20050524
  2. ADVAIR DISKUS 100/50 [Suspect]
     Indication: CHRONIC OBSTRUCTIVE PULMONARY DISEASE
     Dates: end: 20050613
  3. OXYGEN (OXYGEN) [Concomitant]
  4. ATENOLOL [Concomitant]
  5. FOLPEX [Concomitant]
  6. XANAX [Concomitant]
  7. METHOTREXATE [Concomitant]
  8. ACTONEL [Concomitant]
  9. ESTRODOL [Concomitant]
  10. SINGULAIR [Concomitant]
  11. ZOLOFT [Concomitant]
  12. ZETIA [Concomitant]
  13. ACIPHEX [Concomitant]

REACTIONS (2)
  - BURNING SENSATION MUCOSAL [None]
  - DYSPHONIA [None]
